APPROVED DRUG PRODUCT: PROPRANOLOL HYDROCHLORIDE
Active Ingredient: PROPRANOLOL HYDROCHLORIDE
Strength: 80MG
Dosage Form/Route: TABLET;ORAL
Application: A070322 | Product #001 | TE Code: AB
Applicant: INNOGENIX LLC
Approved: Aug 4, 1986 | RLD: No | RS: No | Type: RX